FAERS Safety Report 20676815 (Version 1)
Quarter: 2022Q2

REPORT INFORMATION
  Report Type: Spontaneous
  Country: GF (occurrence: GF)
  Receive Date: 20220406
  Receipt Date: 20220406
  Transmission Date: 20220721
  Serious: Yes (Other)
  Sender: FDA-Public Use
  Company Number: GF-SUN PHARMACEUTICAL INDUSTRIES LTD-2022R1-331646

PATIENT
  Age: 50 Year
  Sex: Male

DRUGS (10)
  1. PREDNISONE [Suspect]
     Active Substance: PREDNISONE
     Indication: Type 2 lepra reaction
     Dosage: 1 MILLIGRAM/KILOGRAM, DAILY
     Route: 065
  2. PREDNISONE [Suspect]
     Active Substance: PREDNISONE
     Indication: Neuralgia
     Dosage: 120 MILLIGRAM, DAILY
     Route: 065
  3. PREDNISONE [Suspect]
     Active Substance: PREDNISONE
     Indication: Ulnar neuritis
     Dosage: 100 MILLIGRAM, DAILY
     Route: 065
  4. CLOFAZIMINE [Concomitant]
     Active Substance: CLOFAZIMINE
     Indication: Leprosy
     Dosage: 100 MILLIGRAM, DAILY
     Route: 065
  5. CLOFAZIMINE [Concomitant]
     Active Substance: CLOFAZIMINE
     Indication: Type 2 lepra reaction
  6. DAPSONE [Concomitant]
     Active Substance: DAPSONE
     Indication: Leprosy
     Dosage: 100 MILLIGRAM, DAILY
     Route: 065
  7. DAPSONE [Concomitant]
     Active Substance: DAPSONE
     Indication: Type 2 lepra reaction
  8. RIFAMPIN [Concomitant]
     Active Substance: RIFAMPIN
     Indication: Leprosy
     Dosage: 600 MILLIGRAM, MONTHLY
     Route: 065
  9. RIFAMPIN [Concomitant]
     Active Substance: RIFAMPIN
     Indication: Type 2 lepra reaction
  10. PENTOXIFYLLINE [Concomitant]
     Active Substance: PENTOXIFYLLINE
     Indication: Type 2 lepra reaction
     Dosage: 400 MILLIGRAM, BID
     Route: 065

REACTIONS (3)
  - Neuritis [Unknown]
  - Intentional product misuse [Unknown]
  - Steroid dependence [Unknown]
